FAERS Safety Report 23749874 (Version 3)
Quarter: 2024Q2

REPORT INFORMATION
  Report Type: Spontaneous
  Country: US (occurrence: US)
  Receive Date: 20240417
  Receipt Date: 20240529
  Transmission Date: 20240715
  Serious: No
  Sender: FDA-Public Use
  Company Number: US-SA-SAC20240410000484

PATIENT
  Age: 55 Year
  Sex: Male

DRUGS (2)
  1. ELOCTATE [Suspect]
     Active Substance: EFMOROCTOCOG ALFA
     Indication: Haemorrhage
     Dosage: 1570 UNITS/3140 UNITS AS NEEDED AS DIRECTED
     Route: 058
  2. ELOCTATE [Suspect]
     Active Substance: EFMOROCTOCOG ALFA
     Indication: Haemorrhage
     Dosage: 1570 UNITS/3140 UNITS AS NEEDED AS DIRECTED
     Route: 058

REACTIONS (8)
  - Haemorrhage [Unknown]
  - Pain in extremity [Unknown]
  - Muscle tightness [Unknown]
  - Spontaneous haemorrhage [Recovered/Resolved]
  - Haemorrhage [Unknown]
  - Back pain [Unknown]
  - Feeling hot [Unknown]
  - Incorrect route of product administration [Unknown]

NARRATIVE: CASE EVENT DATE: 20240328
